FAERS Safety Report 6647409-3 (Version None)
Quarter: 2010Q1

REPORT INFORMATION
  Report Type: 
  Country: None (occurrence: None)
  Receive Date: 20100323
  Receipt Date: 20100310
  Transmission Date: 20100710
  Serious: Yes (Hospitalization)
  Sender: FDA-Public Use
  Company Number: US-NICOBRDEVP-2009-04818

PATIENT
  Age: 88 Year
  Sex: Female

DRUGS (9)
  1. GELNIQUE (WATSON LABORATORIES) [Suspect]
     Indication: BLADDER DISORDER
     Dosage: COMPLETE SACHET TOOK ORALLY
     Route: 048
     Dates: start: 20090623, end: 20090623
  2. GELNIQUE (WATSON LABORATORIES) [Suspect]
     Dosage: APPLYING ONCE DAILY
     Route: 061
     Dates: start: 20090616, end: 20090622
  3. MULTIVITAMIN                       /00831701/ [Concomitant]
     Indication: SUPPLEMENTATION THERAPY
     Dosage: 1 DAILY
     Route: 048
  4. ASPIRIN [Concomitant]
     Indication: DRUG USE FOR UNKNOWN INDICATION
     Dosage: 81 MG, DAILY
     Route: 048
  5. EFFEXOR [Concomitant]
     Indication: DRUG USE FOR UNKNOWN INDICATION
     Dosage: UNK
     Route: 048
  6. COREG [Concomitant]
     Indication: DRUG USE FOR UNKNOWN INDICATION
     Dosage: 12.5 MG, UNKNOWN
     Route: 048
  7. POTASSIUM                          /00031402/ [Concomitant]
     Indication: DRUG USE FOR UNKNOWN INDICATION
     Dosage: 10 MEQ, UNKNOWN
     Route: 048
  8. MAVIK [Concomitant]
     Indication: DRUG USE FOR UNKNOWN INDICATION
     Dosage: 1 MG, UNKNOWN
     Route: 048
  9. PEPCID [Concomitant]
     Indication: DRUG USE FOR UNKNOWN INDICATION
     Dosage: 20 MG, UNKNOWN
     Route: 048

REACTIONS (5)
  - CONFUSIONAL STATE [None]
  - DELUSION [None]
  - DRY MOUTH [None]
  - INCORRECT ROUTE OF DRUG ADMINISTRATION [None]
  - MUSCULAR WEAKNESS [None]
